FAERS Safety Report 14933880 (Version 1)
Quarter: 2018Q2

REPORT INFORMATION
  Report Type: Spontaneous
  Country: ZA (occurrence: ZA)
  Receive Date: 20180524
  Receipt Date: 20180524
  Transmission Date: 20180711
  Serious: Yes (Hospitalization)
  Sender: FDA-Public Use
  Company Number: ZA-PFIZER INC-2018207785

PATIENT
  Age: 58 Year
  Sex: Male

DRUGS (9)
  1. PHARMAPRESS (ENALAPRIL MALEATE) [Suspect]
     Active Substance: ENALAPRIL MALEATE
     Dosage: 5 MG, UNK
  2. EPLEPTIN [Suspect]
     Active Substance: GABAPENTIN
     Dosage: 400 MG, UNK
  3. CARLOC [Suspect]
     Active Substance: CARVEDILOL
     Dosage: 6.25 MG, UNK
  4. LASIX [Suspect]
     Active Substance: FUROSEMIDE
     Dosage: 20 MG, UNK
  5. ASPAVOR [Suspect]
     Active Substance: ATORVASTATIN
     Dosage: 20 MG, UNK
  6. ECOTRIN [Suspect]
     Active Substance: ASPIRIN
     Dosage: 81 MG, UNK
  7. APIDRA SOLOSTAR [Suspect]
     Active Substance: INSULIN GLULISINE
     Dosage: 100 IU, UNK
  8. LANTUS SOLOSTAR [Suspect]
     Active Substance: INSULIN GLARGINE
     Dosage: 100 IU, UNK
  9. ALDACTONE [Suspect]
     Active Substance: SPIRONOLACTONE
     Dosage: 25 MG, UNK

REACTIONS (1)
  - Arterial occlusive disease [Unknown]
